FAERS Safety Report 16308770 (Version 3)
Quarter: 2019Q3

REPORT INFORMATION
  Report Type: Spontaneous
  Country: US (occurrence: US)
  Receive Date: 20190514
  Receipt Date: 20190724
  Transmission Date: 20191004
  Serious: No
  Sender: FDA-Public Use
  Company Number: US-PFIZER INC-2019108029

PATIENT
  Age: 96 Year
  Sex: Female

DRUGS (2)
  1. IBRANCE [Suspect]
     Active Substance: PALBOCICLIB
     Dosage: 75 MG, CYCLIC (2 WEEKS ON AND 1 WEEK OFF)
  2. IBRANCE [Suspect]
     Active Substance: PALBOCICLIB
     Indication: BREAST CANCER FEMALE
     Dosage: 75 MG, CYCLIC (DAILY, MONDAY-FRIDAY FOR 14 DAYS QUANTITY: 10/ 2 WEEKS ON AND 1 WEEK OFF)
     Route: 048

REACTIONS (4)
  - Feeding disorder [Unknown]
  - Full blood count abnormal [Unknown]
  - Hypoacusis [Unknown]
  - White blood cell count abnormal [Unknown]
